FAERS Safety Report 15181324 (Version 2)
Quarter: 2018Q4

REPORT INFORMATION
  Report Type: Spontaneous
  Country: US (occurrence: US)
  Receive Date: 20180723
  Receipt Date: 20181001
  Transmission Date: 20190204
  Serious: No
  Sender: FDA-Public Use
  Company Number: US-SA-2018SA195187

PATIENT
  Age: 66 Year
  Sex: Female

DRUGS (1)
  1. LOVENOX [Suspect]
     Active Substance: ENOXAPARIN SODIUM
     Indication: PROPHYLAXIS
     Dosage: 100 MG, BID
     Route: 065
     Dates: start: 20180714

REACTIONS (3)
  - Product complaint [Unknown]
  - Application site pain [Unknown]
  - Product dose omission [Unknown]
